FAERS Safety Report 10206004 (Version 1)
Quarter: 2014Q2

REPORT INFORMATION
  Report Type: Spontaneous
  Country: US (occurrence: None)
  Receive Date: 20140527
  Receipt Date: 20140527
  Transmission Date: 20141212
  Serious: No
  Sender: FDA-Public Use
  Company Number: None

PATIENT
  Age: 24 Year
  Sex: Female
  Weight: 68.04 kg

DRUGS (1)
  1. ESCITALOPRAM [Suspect]
     Indication: ANXIETY
     Dosage: 1 PILL/DAY?ONCE DAILY?TAKEN BY MOUTH
     Route: 048

REACTIONS (11)
  - Urticaria [None]
  - Rash generalised [None]
  - Food allergy [None]
  - Nausea [None]
  - Varicose vein [None]
  - Weight increased [None]
  - Headache [None]
  - Neck pain [None]
  - Irritability [None]
  - Decreased appetite [None]
  - Drug dose omission [None]
